FAERS Safety Report 6662225-4 (Version None)
Quarter: 2010Q1

REPORT INFORMATION
  Report Type: 
  Country: None (occurrence: None)
  Receive Date: 20100331
  Receipt Date: 20100330
  Transmission Date: 20100710
  Serious: Yes (Other)
  Sender: FDA-Public Use
  Company Number: GXKR2010DE03642

PATIENT
  Age: 53 Year
  Sex: Female

DRUGS (2)
  1. LOPEDIUM AKUT BEI AKUTEM DURCHFALL (NGX) [Suspect]
     Dosage: 2 MG, TID
     Route: 048
     Dates: start: 20100314, end: 20100314
  2. TELMISARTAN [Concomitant]

REACTIONS (2)
  - BLISTER [None]
  - URTICARIA [None]
